FAERS Safety Report 12202671 (Version 2)
Quarter: 2016Q2

REPORT INFORMATION
  Report Type: Report from Study
  Country: US (occurrence: US)
  Receive Date: 20160322
  Receipt Date: 20160419
  Transmission Date: 20160815
  Serious: Yes (Other)
  Sender: FDA-Public Use
  Company Number: US-GILEAD-2016-0204658

PATIENT
  Age: 66 Year
  Sex: Male

DRUGS (2)
  1. REVATIO [Concomitant]
     Active Substance: SILDENAFIL CITRATE
  2. AMBRISENTAN [Suspect]
     Active Substance: AMBRISENTAN
     Indication: PRODUCT USED FOR UNKNOWN INDICATION
     Dosage: 10 MG, QD
     Route: 065
     Dates: start: 20120814

REACTIONS (5)
  - Upper respiratory tract congestion [Not Recovered/Not Resolved]
  - Pneumonia [Recovering/Resolving]
  - Nasal congestion [Not Recovered/Not Resolved]
  - Weight increased [Unknown]
  - Pulmonary fibrosis [Not Recovered/Not Resolved]
